FAERS Safety Report 4526888-1 (Version None)
Quarter: 2004Q4

REPORT INFORMATION
  Report Type: 
  Country: None (occurrence: None)
  Receive Date: 20041213
  Receipt Date: 20041130
  Transmission Date: 20050328
  Serious: No
  Sender: FDA-Public Use
  Company Number: 2004AC00912

PATIENT
  Age: 65 Year
  Sex: Male

DRUGS (4)
  1. NEXIUM [Suspect]
     Dosage: 40 MG DAILY PO
     Route: 048
     Dates: start: 20041020, end: 20041027
  2. ACENOCOUMAROLUM [Suspect]
     Dosage: 1 MG DAILY
     Dates: start: 20021221
  3. SOTALOL HCL [Concomitant]
  4. SELEKTINE [Concomitant]

REACTIONS (2)
  - DRUG INTERACTION POTENTIATION [None]
  - INTERNATIONAL NORMALISED RATIO INCREASED [None]
